FAERS Safety Report 6877242-9 (Version None)
Quarter: 2010Q3

REPORT INFORMATION
  Report Type: 
  Country: None (occurrence: None)
  Receive Date: 20100727
  Receipt Date: 20090805
  Transmission Date: 20110219
  Serious: No
  Sender: FDA-Public Use
  Company Number: US-ABBOTT-09P-163-0590111-00

PATIENT
  Sex: Female

DRUGS (12)
  1. SYNTHROID [Suspect]
     Indication: HYPOTHYROIDISM
     Dates: start: 19750101, end: 19750101
  2. MICARDIS [Concomitant]
     Indication: HYPERTENSION
  3. HYDROCHLOROTHIAZIDE [Concomitant]
     Indication: HYPERTENSION
  4. IBUPROFEN TABLETS [Concomitant]
     Indication: ARTHRITIS
  5. IBUPROFEN TABLETS [Concomitant]
     Indication: SCIATICA
  6. PROPOXYPHENE HCL [Concomitant]
     Indication: ARTHRITIS
  7. PROPOXYPHENE HCL [Concomitant]
     Indication: SCIATICA
  8. DOXAZOSIN [Concomitant]
     Indication: PRODUCT USED FOR UNKNOWN INDICATION
  9. CENTRUM SILVER [Concomitant]
     Indication: VITAMIN SUPPLEMENTATION
  10. FLAX SEED OIL [Concomitant]
     Indication: SUPPLEMENTATION THERAPY
     Dosage: DAILY
  11. CO Q10 [Concomitant]
     Indication: VITAMIN SUPPLEMENTATION
     Dosage: DAILY
  12. GLUCOSAMINE AND CHONDROITIN [Concomitant]
     Indication: SUPPLEMENTATION THERAPY
     Dosage: DAILY

REACTIONS (4)
  - BLISTER [None]
  - DEPRESSION [None]
  - FEELING COLD [None]
  - WEIGHT INCREASED [None]
